FAERS Safety Report 13969567 (Version 2)
Quarter: 2017Q4

REPORT INFORMATION
  Report Type: Spontaneous
  Country: US (occurrence: US)
  Receive Date: 20170914
  Receipt Date: 20171004
  Transmission Date: 20180321
  Serious: Yes (Other)
  Sender: FDA-Public Use
  Company Number: US-BAYER-2017-171582

PATIENT
  Age: 67 Year
  Sex: Male

DRUGS (1)
  1. STIVARGA [Suspect]
     Active Substance: REGORAFENIB
     Indication: COLON CANCER
     Dosage: DAILY DOSE 160 MG TAKE FOR 21 DAYS, THEN 7 DAYS OFF WITH A LOW-FAT MEAL,SWALLOW TABLETS WHOLE
     Route: 048
     Dates: start: 20170901

REACTIONS (6)
  - Cough [None]
  - Fatigue [None]
  - Fatigue [Not Recovered/Not Resolved]
  - Dyspnoea [None]
  - Nausea [Not Recovered/Not Resolved]
  - Sepsis [Not Recovered/Not Resolved]

NARRATIVE: CASE EVENT DATE: 20170901
